FAERS Safety Report 25688236 (Version 2)
Quarter: 2025Q3

REPORT INFORMATION
  Report Type: Spontaneous
  Country: JP (occurrence: JP)
  Receive Date: 20250818
  Receipt Date: 20250821
  Transmission Date: 20251021
  Serious: Yes (Other)
  Sender: TAKEDA
  Company Number: JP-TAKEDA-2025TJP008238

PATIENT
  Age: 79 Year
  Sex: Male

DRUGS (2)
  1. FRUZAQLA [Suspect]
     Active Substance: FRUQUINTINIB
     Indication: Colon cancer
     Dosage: 3 MILLIGRAM, QD
     Dates: start: 20250716
  2. ELIQUIS [Concomitant]
     Active Substance: APIXABAN

REACTIONS (1)
  - Atrial fibrillation [Recovering/Resolving]

NARRATIVE: CASE EVENT DATE: 20250813
